FAERS Safety Report 23002475 (Version 2)
Quarter: 2023Q4

REPORT INFORMATION
  Report Type: Spontaneous
  Country: BR (occurrence: BR)
  Receive Date: 20230928
  Receipt Date: 20231030
  Transmission Date: 20240109
  Serious: Yes (Life-Threatening, Other)
  Sender: FDA-Public Use
  Company Number: BR-BAXTER-2023BAX032107

PATIENT
  Age: 24 Year
  Sex: Female
  Weight: 68 kg

DRUGS (3)
  1. IRON [Suspect]
     Active Substance: IRON
     Indication: Anaemia
     Dosage: 2 AMPOULES ONCE A WEEK FOR A MONTH (TOTALING 8 AMPOULES), DILUTED IN 250 ML SODIUM CHLORIDE IN 2 HOU
     Route: 042
     Dates: start: 20230908, end: 20230915
  2. SODIUM CHLORIDE [Suspect]
     Active Substance: SODIUM CHLORIDE
     Indication: Medication dilution
     Dosage: 250 ML ONCE A WEEK FOR A MONTH, USED TO DILUTE 2 AMPOULES OF SUCORFER IN 2 HOURS
     Route: 042
     Dates: start: 20230908, end: 20230915
  3. LORATADINE [Suspect]
     Active Substance: LORATADINE
     Dosage: 1 TABLET
     Route: 048
     Dates: start: 20230908, end: 20230908

REACTIONS (8)
  - Laryngeal oedema [Recovered/Resolved]
  - Vital functions abnormal [Recovered/Resolved]
  - Oedema peripheral [Recovered/Resolved]
  - Dizziness [Recovered/Resolved]
  - Vomiting [Recovered/Resolved]
  - Peripheral swelling [Recovered/Resolved]
  - Blood pressure decreased [Recovered/Resolved]
  - Product administration error [Recovered/Resolved]

NARRATIVE: CASE EVENT DATE: 20230908
